FAERS Safety Report 13280376 (Version 4)
Quarter: 2017Q4

REPORT INFORMATION
  Report Type: Report from Study
  Country: CA (occurrence: CA)
  Receive Date: 20170301
  Receipt Date: 20171206
  Transmission Date: 20180320
  Serious: Yes (Other)
  Sender: FDA-Public Use
  Company Number: CA-BRISTOL-MYERS SQUIBB COMPANY-BMS-2017-015642

PATIENT
  Age: 47 Year
  Sex: Female

DRUGS (1)
  1. ABATACEPT [Suspect]
     Active Substance: ABATACEPT
     Indication: RHEUMATOID ARTHRITIS
     Dosage: 750 MG, Q4WK
     Route: 042
     Dates: start: 20161125

REACTIONS (5)
  - Bladder disorder [Unknown]
  - Rash erythematous [Recovered/Resolved]
  - Anorectal disorder [Unknown]
  - Therapeutic response decreased [Unknown]
  - Ovarian disorder [Unknown]

NARRATIVE: CASE EVENT DATE: 20170421
